FAERS Safety Report 5092565-4 (Version None)
Quarter: 2006Q3

REPORT INFORMATION
  Report Type: 
  Country: None (occurrence: None)
  Receive Date: 20060828
  Receipt Date: 20060815
  Transmission Date: 20061208
  Serious: Yes (Hospitalization)
  Sender: FDA-Public Use
  Company Number: 2006099965

PATIENT
  Sex: Male

DRUGS (4)
  1. BEXTRA [Suspect]
     Indication: INTERVERTEBRAL DISC DEGENERATION
     Dosage: 20 MG (20 MG, 1 IN 1 D)
     Dates: start: 20020926
  2. BEXTRA [Suspect]
     Indication: MUSCULOSKELETAL PAIN
     Dosage: 20 MG (20 MG, 1 IN 1 D)
     Dates: start: 20020926
  3. BEXTRA [Suspect]
     Indication: PERIARTHRITIS
     Dosage: 20 MG (20 MG, 1 IN 1 D)
     Dates: start: 20020926
  4. CELEBREX [Suspect]
     Indication: OSTEOARTHRITIS
     Dosage: 400 MG (200 MG,2 IN 1 D)
     Dates: start: 19990928

REACTIONS (6)
  - ARTERIAL OCCLUSIVE DISEASE [None]
  - CARDIAC DISORDER [None]
  - DECREASED ACTIVITY [None]
  - MYOCARDIAL INFARCTION [None]
  - ROTATOR CUFF SYNDROME [None]
  - SEXUAL DYSFUNCTION [None]
